FAERS Safety Report 5572529-4 (Version None)
Quarter: 2007Q4

REPORT INFORMATION
  Report Type: 
  Country: None (occurrence: None)
  Receive Date: 20071222
  Receipt Date: 20071214
  Transmission Date: 20080405
  Serious: Yes (Other)
  Sender: FDA-Public Use
  Company Number: SE-PFIZER INC-2007106420

PATIENT
  Age: 28 Year
  Sex: Female

DRUGS (4)
  1. CYTOTEC [Suspect]
     Indication: ABORTION INDUCED
     Dosage: DAILY DOSE:.8MG
     Route: 067
     Dates: start: 20070822, end: 20070822
  2. ACETAMINOPHEN [Suspect]
     Indication: ABORTION INDUCED
     Dosage: DAILY DOSE:2GRAM
     Route: 048
     Dates: start: 20070822, end: 20070822
  3. ZOFRAN [Suspect]
     Indication: ABORTION INDUCED
     Dosage: DAILY DOSE:4MG
     Route: 048
     Dates: start: 20070822, end: 20070822
  4. TRADOLAN [Suspect]
     Indication: ABORTION INDUCED
     Dosage: DAILY DOSE:50MG
     Route: 048
     Dates: start: 20070822, end: 20070822

REACTIONS (4)
  - ABORTION [None]
  - ARTHRALGIA [None]
  - OFF LABEL USE [None]
  - PYREXIA [None]
